FAERS Safety Report 6744788-3 (Version None)
Quarter: 2010Q2

REPORT INFORMATION
  Report Type: 
  Country: None (occurrence: None)
  Receive Date: 20100527
  Receipt Date: 20100208
  Transmission Date: 20101027
  Serious: No
  Sender: FDA-Public Use
  Company Number: US-BRISTOL-MYERS SQUIBB COMPANY-14968770

PATIENT

DRUGS (1)
  1. ONGLYZA [Suspect]

REACTIONS (1)
  - HEADACHE [None]
